FAERS Safety Report 22109898 (Version 1)
Quarter: 2023Q1

REPORT INFORMATION
  Report Type: Spontaneous
  Country: US (occurrence: None)
  Receive Date: 20230317
  Receipt Date: 20230317
  Transmission Date: 20230417
  Serious: Yes (Hospitalization)
  Sender: FDA-Public Use
  Company Number: None

PATIENT
  Age: 67 Year
  Sex: Female
  Weight: 98.38 kg

DRUGS (21)
  1. CAPECITABINE [Suspect]
     Active Substance: CAPECITABINE
     Indication: Breast cancer female
     Dosage: FREQUENCY : TWICE A DAY;?
     Route: 048
  2. ADVAIR HFA [Concomitant]
     Active Substance: FLUTICASONE PROPIONATE\SALMETEROL XINAFOATE
  3. ALBUTEROL SULFATE [Concomitant]
     Active Substance: ALBUTEROL SULFATE
  4. ASPIRIN 81 [Concomitant]
  5. CALCIUM [Concomitant]
     Active Substance: CALCIUM
  6. CHLORHEXIDINE [Concomitant]
     Active Substance: CHLORHEXIDINE
  7. ELIQUIS [Concomitant]
     Active Substance: APIXABAN
  8. FUROSEMIDE [Concomitant]
     Active Substance: FUROSEMIDE
  9. lpratropium-Albuterol [Concomitant]
  10. KETOROLAC [Concomitant]
  11. TROMETHAMINE [Concomitant]
     Active Substance: TROMETHAMINE
  12. LETROZOLE [Concomitant]
     Active Substance: LETROZOLE
  13. LORATADINE [Concomitant]
     Active Substance: LORATADINE
  14. LOSARTAN POTASSIUM [Concomitant]
     Active Substance: LOSARTAN POTASSIUM
  15. METOPROLOL SUCCINATE [Concomitant]
     Active Substance: METOPROLOL SUCCINATE
  16. ONDANSETRON [Concomitant]
     Active Substance: ONDANSETRON
  17. SPIRONOLACTONE [Concomitant]
     Active Substance: SPIRONOLACTONE
  18. DEXAMETHASONE\TOBRAMYCIN [Concomitant]
     Active Substance: DEXAMETHASONE\TOBRAMYCIN
  19. VITAMIN D [Concomitant]
     Active Substance: VITAMIN D NOS
  20. Womens 50+ Multi Vitamin/Min [Concomitant]
  21. ZOFRAN [Concomitant]
     Active Substance: ONDANSETRON HYDROCHLORIDE

REACTIONS (1)
  - Unresponsive to stimuli [None]
